FAERS Safety Report 25690981 (Version 1)
Quarter: 2025Q3

REPORT INFORMATION
  Report Type: Spontaneous
  Country: US (occurrence: US)
  Receive Date: 20250818
  Receipt Date: 20250818
  Transmission Date: 20251021
  Serious: Yes (Hospitalization)
  Sender: BAYER HEALTHCARE LLC
  Company Number: US-BAYER-2025A107724

PATIENT
  Sex: Male

DRUGS (1)
  1. BAYER LOW DOSE [Suspect]
     Active Substance: ASPIRIN

REACTIONS (1)
  - Ulcer haemorrhage [Unknown]
